FAERS Safety Report 22259710 (Version 3)
Quarter: 2023Q2

REPORT INFORMATION
  Report Type: Spontaneous
  Country: GB (occurrence: GB)
  Receive Date: 20230427
  Receipt Date: 20230620
  Transmission Date: 20230722
  Serious: Yes (Other)
  Sender: FDA-Public Use
  Company Number: GB-AstraZeneca-2022A190973

PATIENT
  Sex: Female

DRUGS (96)
  1. APIXABAN [Suspect]
     Active Substance: APIXABAN
     Indication: Cerebrovascular accident prophylaxis
     Dosage: 10 MILLIGRAM, QD (START DATE: 07-FEB-2023)
     Route: 065
     Dates: end: 20230207
  2. BISOPROLOL [Suspect]
     Active Substance: BISOPROLOL
     Indication: Cerebrovascular accident prophylaxis
     Dosage: 10 MILLIGRAM, QD
     Route: 065
  3. BISOPROLOL [Suspect]
     Active Substance: BISOPROLOL
     Dosage: 5 MILLIGRAM, QD
     Route: 065
     Dates: start: 20180207, end: 20180207
  4. CANDESARTAN [Suspect]
     Active Substance: CANDESARTAN
     Indication: Product used for unknown indication
     Dosage: UNK
     Route: 065
  5. CANDESARTAN [Suspect]
     Active Substance: CANDESARTAN
     Dosage: UNK UNK, QD (START DATE: 22-FEB-2023)
     Route: 065
  6. CANDESARTAN [Suspect]
     Active Substance: CANDESARTAN
     Dosage: UNK (START DATE: 01-APR-2022)
     Route: 065
     Dates: end: 20230316
  7. CETIRIZINE [Suspect]
     Active Substance: CETIRIZINE HYDROCHLORIDE
     Indication: Product used for unknown indication
     Dosage: 10 MILLIGRAM, QD
     Route: 048
  8. CETIRIZINE [Suspect]
     Active Substance: CETIRIZINE HYDROCHLORIDE
     Dosage: 10 MILLIGRAM, QD
     Route: 065
  9. ESOMEPRAZOLE [Suspect]
     Active Substance: ESOMEPRAZOLE
     Indication: Reflux laryngitis
     Dosage: 40 MILLIGRAM (AFTER MEAL)
     Route: 065
  10. FELODIPINE [Suspect]
     Active Substance: FELODIPINE
     Indication: Blood pressure abnormal
     Dosage: UNK
     Route: 065
  11. FELODIPINE [Suspect]
     Active Substance: FELODIPINE
     Dosage: UNK (START DATE: 06-JAN-2023)
     Route: 065
  12. HYDROCHLOROTHIAZIDE [Suspect]
     Active Substance: HYDROCHLOROTHIAZIDE
     Indication: Product used for unknown indication
     Dosage: 2 MILLIGRAM, QD (MORNING)
     Route: 048
  13. ISOSORBIDE MONONITRATE [Suspect]
     Active Substance: ISOSORBIDE MONONITRATE
     Indication: Product used for unknown indication
     Dosage: UNK
     Route: 065
  14. ISOSORBIDE MONONITRATE [Suspect]
     Active Substance: ISOSORBIDE MONONITRATE
     Dosage: 50 MILLIGRAM, QD
     Route: 065
  15. LANSOPRAZOLE [Suspect]
     Active Substance: LANSOPRAZOLE
     Indication: Product used for unknown indication
     Dosage: 30 MILLIGRAM, QD
     Route: 065
  16. NAPROXEN [Suspect]
     Active Substance: NAPROXEN
     Indication: Product used for unknown indication
     Dosage: UNK
     Route: 065
  17. SIMVASTATIN [Suspect]
     Active Substance: SIMVASTATIN
     Indication: Product used for unknown indication
     Dosage: 40 MILLIGRAM, QD (NIGHT)
     Route: 048
  18. SIMVASTATIN [Suspect]
     Active Substance: SIMVASTATIN
     Dosage: 40 MILLIGRAM, QD (NIGHT)
     Route: 065
  19. IMDUR [Suspect]
     Active Substance: ISOSORBIDE MONONITRATE
     Indication: Product used for unknown indication
     Dosage: UNK
     Route: 065
  20. ASTRAZENECA COVID-19 VACCINE [Suspect]
     Active Substance: AZD-1222
     Indication: COVID-19 immunisation
     Dosage: UNK
     Route: 065
  21. ASTRAZENECA COVID-19 VACCINE [Suspect]
     Active Substance: AZD-1222
     Indication: Adverse drug reaction
     Dosage: UNK
     Route: 065
     Dates: start: 20210622, end: 20210622
  22. ASTRAZENECA COVID-19 VACCINE [Suspect]
     Active Substance: AZD-1222
     Dosage: UNK
     Route: 030
     Dates: start: 20210601, end: 20220512
  23. ASTRAZENECA COVID-19 VACCINE [Suspect]
     Active Substance: AZD-1222
     Dosage: UNK
     Route: 030
  24. ASTRAZENECA COVID-19 VACCINE [Suspect]
     Active Substance: AZD-1222
     Dosage: UNK
     Route: 065
     Dates: start: 20210312
  25. ASTRAZENECA COVID-19 VACCINE [Suspect]
     Active Substance: AZD-1222
     Dosage: UNK
     Route: 065
     Dates: start: 20221214
  26. ASTRAZENECA COVID-19 VACCINE [Suspect]
     Active Substance: AZD-1222
     Dosage: UNK
     Route: 065
     Dates: start: 20210312, end: 20210312
  27. ASTRAZENECA COVID-19 VACCINE [Suspect]
     Active Substance: AZD-1222
     Dosage: UNK
     Route: 065
     Dates: start: 20210625
  28. ASTRAZENECA COVID-19 VACCINE [Suspect]
     Active Substance: AZD-1222
     Dosage: UNK
     Route: 065
     Dates: start: 20210517
  29. ASTRAZENECA COVID-19 VACCINE [Suspect]
     Active Substance: AZD-1222
     Dosage: UNK
     Route: 065
     Dates: start: 20211221, end: 20211221
  30. ASTRAZENECA COVID-19 VACCINE [Suspect]
     Active Substance: AZD-1222
     Dosage: UNK
     Route: 065
     Dates: start: 20210601, end: 20220512
  31. ASTRAZENECA COVID-19 VACCINE [Suspect]
     Active Substance: AZD-1222
     Dosage: UNK
     Route: 065
  32. ASTRAZENECA COVID-19 VACCINE [Suspect]
     Active Substance: AZD-1222
     Dosage: UNK
     Route: 065
  33. ASTRAZENECA COVID-19 VACCINE [Suspect]
     Active Substance: AZD-1222
     Dosage: UNK
     Route: 065
  34. ASTRAZENECA COVID-19 VACCINE [Suspect]
     Active Substance: AZD-1222
     Dosage: UNK
     Route: 065
  35. DAPAGLIFLOZIN [Suspect]
     Active Substance: DAPAGLIFLOZIN
     Indication: Ill-defined disorder
     Dosage: UNK (START DATE: 25-JUL-2022)
     Route: 065
  36. DAPAGLIFLOZIN [Suspect]
     Active Substance: DAPAGLIFLOZIN
     Indication: Product used for unknown indication
     Dosage: 10 MILLIGRAM, QD (START DATE: 17-FEB-2023)
     Route: 048
  37. DIGOXIN [Suspect]
     Active Substance: DIGOXIN
     Indication: Cerebrovascular accident prophylaxis
     Dosage: UNK
     Route: 065
  38. LEVOTHYROXINE SODIUM [Suspect]
     Active Substance: LEVOTHYROXINE SODIUM
     Indication: Product used for unknown indication
     Dosage: 125 MICROGRAM, QD (MORNING)
     Route: 065
  39. LEVOTHYROXINE SODIUM [Suspect]
     Active Substance: LEVOTHYROXINE SODIUM
     Dosage: 50 MICROGRAM, QD (MORNING)
     Route: 065
  40. LEVOTHYROXINE SODIUM [Suspect]
     Active Substance: LEVOTHYROXINE SODIUM
     Dosage: UNK
     Route: 065
  41. LINAGLIPTIN [Suspect]
     Active Substance: LINAGLIPTIN
     Indication: Product used for unknown indication
     Dosage: 5 MILLIGRAM, QD
     Route: 065
  42. ALBUTEROL SULFATE [Concomitant]
     Active Substance: ALBUTEROL SULFATE
     Dosage: UNK (START DATE: 18-AUG-2022)
     Route: 065
  43. AMITRIPTYLINE HYDROCHLORIDE [Concomitant]
     Active Substance: AMITRIPTYLINE HYDROCHLORIDE
     Dosage: UNK (START DATE: 23-NOV-2022)
     Route: 065
  44. AMLODIPINE [Concomitant]
     Active Substance: AMLODIPINE BESYLATE
     Dosage: UNK
     Route: 065
  45. ATORVASTATIN [Concomitant]
     Active Substance: ATORVASTATIN
     Dosage: UNK
     Route: 065
  46. BENDROFLUMETHIAZIDE [Concomitant]
     Active Substance: BENDROFLUMETHIAZIDE
     Dosage: UNK  (START DATE: 23-NOV-2022)
     Route: 065
  47. BENDROFLUMETHIAZIDE [Concomitant]
     Active Substance: BENDROFLUMETHIAZIDE
     Dosage: UNK
     Route: 065
  48. BISOPROLOL [Concomitant]
     Active Substance: BISOPROLOL
     Dosage: UNK  (START DATE: 01-MAR-2023)
     Route: 065
  49. BISOPROLOL [Concomitant]
     Active Substance: BISOPROLOL
     Dosage: UNK (START DATE: 05-DEC-2022)
     Route: 065
  50. BUMETANIDE [Concomitant]
     Active Substance: BUMETANIDE
     Dosage: UNK  (START DATE:25-MAY-2022)
     Route: 065
     Dates: end: 20230217
  51. CHLORAMPHENICOL [Concomitant]
     Active Substance: CHLORAMPHENICOL
     Dosage: UNK (START DATE: 18-MAR-2023)
     Route: 065
  52. CITALOPRAM [Concomitant]
     Active Substance: CITALOPRAM HYDROBROMIDE
     Dosage: UNK (START DATE: 18-MAR-2023)
     Route: 065
  53. INSULIN GLARGINE [Concomitant]
     Active Substance: INSULIN GLARGINE
     Dosage: UNK (START DATE: 13-OCT-2021)
     Route: 065
     Dates: end: 20230106
  54. ASPIRIN [Concomitant]
     Active Substance: ASPIRIN
     Dosage: UNK (START DATE: 26-JAN-2023)
     Route: 065
  55. COMIRNATY [Concomitant]
     Active Substance: TOZINAMERAN
     Dosage: UNK
     Route: 065
  56. DAPAGLIFLOZIN [Concomitant]
     Active Substance: DAPAGLIFLOZIN
     Dosage: UNK (START DATE: 12-MAY-2022)
     Route: 065
  57. DOCUSATE SODIUM [Concomitant]
     Active Substance: DOCUSATE SODIUM
     Dosage: UNK
     Route: 065
  58. DOXAZOSIN [Concomitant]
     Active Substance: DOXAZOSIN MESYLATE
     Dosage: UNK
     Route: 065
  59. EDOXABAN [Concomitant]
     Active Substance: EDOXABAN
     Dosage: UNK (START DATE: 05-DEC-2022)
     Route: 065
  60. ESTRIOL [Concomitant]
     Active Substance: ESTRIOL
     Dosage: UNK (START DATE: 23-NOV-2022)
     Route: 065
  61. FEXOFENADINE [Concomitant]
     Active Substance: FEXOFENADINE HYDROCHLORIDE
     Dosage: UNK (START DATE: 17-MAR-2023)
     Route: 065
  62. FLUTICASONE PROPIONATE [Concomitant]
     Active Substance: FLUTICASONE PROPIONATE
     Dosage: UNK
     Route: 065
  63. FOSFOMYCIN [Concomitant]
     Active Substance: FOSFOMYCIN
     Dosage: UNK (START DATE: 27-FEB-2023)
     Route: 065
     Dates: end: 20230228
  64. GABAPENTIN [Concomitant]
     Active Substance: GABAPENTIN
     Dosage: UNK
     Route: 065
  65. GAVISCON [Concomitant]
     Active Substance: ALUMINUM HYDROXIDE\MAGNESIUM CARBONATE
     Dosage: UNK
     Route: 065
  66. GLICLAZIDE [Concomitant]
     Active Substance: GLICLAZIDE
     Dosage: UNK
     Route: 065
  67. NITROGLYCERIN [Concomitant]
     Active Substance: NITROGLYCERIN
     Dosage: UNK
     Route: 065
  68. LACTULOSE [Concomitant]
     Active Substance: LACTULOSE
     Dosage: UNK
     Route: 065
  69. LACTULOSE [Concomitant]
     Active Substance: LACTULOSE
     Dosage: UNK (START DATE: 04-NOV-2022)
     Route: 065
  70. LANSOPRAZOLE [Concomitant]
     Active Substance: LANSOPRAZOLE
     Dosage: UNK
     Route: 065
  71. POLYETHYLENE GLYCOL 3350\POTASSIUM CHLORIDE\SODIUM BICARBONATE\SODIUM [Concomitant]
     Active Substance: POLYETHYLENE GLYCOL 3350\POTASSIUM CHLORIDE\SODIUM BICARBONATE\SODIUM CHLORIDE
     Dosage: UNK
     Route: 065
  72. LEVOTHYROXINE SODIUM [Concomitant]
     Active Substance: LEVOTHYROXINE SODIUM
     Dosage: UNK
     Route: 065
  73. LOSARTAN [Concomitant]
     Active Substance: LOSARTAN
     Dosage: UNK
     Route: 065
  74. METFORMIN [Concomitant]
     Active Substance: METFORMIN HYDROCHLORIDE
     Dosage: UNK
     Route: 065
  75. METFORMIN [Concomitant]
     Active Substance: METFORMIN HYDROCHLORIDE
     Dosage: UNK
     Route: 065
  76. Movelat [Concomitant]
     Dosage: UNK
     Route: 065
  77. OLANZAPINE [Concomitant]
     Active Substance: OLANZAPINE
     Dosage: UNK
     Route: 065
  78. OMEPRAZOLE [Concomitant]
     Active Substance: OMEPRAZOLE
     Dosage: UNK (START DATE: 05-DEC-2022)
     Route: 065
  79. OMEPRAZOLE [Concomitant]
     Active Substance: OMEPRAZOLE
     Dosage: UNK (START DATE: 23-NOV-2022)
     Route: 065
  80. ACETAMINOPHEN [Concomitant]
     Active Substance: ACETAMINOPHEN
     Dosage: UNK (START DATE: 11-JAN-2023)
     Route: 065
     Dates: end: 20230123
  81. PREDNISOLONE [Concomitant]
     Active Substance: PREDNISOLONE
     Dosage: UNK
     Route: 065
  82. RAMIPRIL [Concomitant]
     Active Substance: RAMIPRIL
     Dosage: UNK
     Route: 065
  83. RAMIPRIL [Concomitant]
     Active Substance: RAMIPRIL
     Dosage: UNK (START DATE: 05-DEC-2022)
     Route: 065
  84. ROSUVASTATIN [Concomitant]
     Active Substance: ROSUVASTATIN
     Dosage: UNK (START DATE: 17-MAR-2021)
     Route: 065
     Dates: end: 20230217
  85. SENNA [Concomitant]
     Active Substance: SENNA LEAF\SENNOSIDES\SENNOSIDES A AND B
     Dosage: UNK (START DATE: 17-DEC-2021)
     Route: 065
     Dates: start: 20211217
  86. SILDENAFIL [Concomitant]
     Active Substance: SILDENAFIL
     Dosage: UNK (PFIZER)
     Route: 065
  87. SILDENAFIL [Concomitant]
     Active Substance: SILDENAFIL
     Dosage: UNK
     Route: 065
  88. SIMVASTATIN [Concomitant]
     Active Substance: SIMVASTATIN
     Dosage: UNK (START DATE: 23-NOV-2022)
     Route: 065
  89. SIMVASTATIN [Concomitant]
     Active Substance: SIMVASTATIN
     Dosage: UNK
     Route: 065
  90. SITAGLIPTIN [Concomitant]
     Active Substance: SITAGLIPTIN
     Dosage: UNK
     Route: 065
  91. SOTALOL [Concomitant]
     Active Substance: SOTALOL
     Dosage: UNK
     Route: 065
  92. SPIRONOLACTONE [Concomitant]
     Active Substance: SPIRONOLACTONE
     Dosage: UNK
     Route: 065
  93. SPIRONOLACTONE [Concomitant]
     Active Substance: SPIRONOLACTONE
     Dosage: UNK (START DATE: 05-JAN-2023)
     Route: 065
  94. WARFARIN SODIUM [Concomitant]
     Active Substance: WARFARIN SODIUM
     Dosage: UNK
     Route: 065
  95. ACETAMINOPHEN\CODEINE PHOSPHATE [Concomitant]
     Active Substance: ACETAMINOPHEN\CODEINE PHOSPHATE
     Dosage: UNK
     Route: 065
  96. MINERAL OIL [Concomitant]
     Active Substance: MINERAL OIL
     Dosage: UNK
     Route: 065

REACTIONS (65)
  - Hallucination [Recovered/Resolved]
  - Diarrhoea [Recovered/Resolved]
  - Malaise [Unknown]
  - Abdominal discomfort [Unknown]
  - Headache [Not Recovered/Not Resolved]
  - Nausea [Recovered/Resolved]
  - Angioedema [Recovered/Resolved]
  - COVID-19 [Recovered/Resolved]
  - Dizziness [Recovered/Resolved]
  - Tinnitus [Not Recovered/Not Resolved]
  - Arthralgia [Recovered/Resolved]
  - Pain of skin [Recovered/Resolved]
  - Peripheral swelling [Recovered/Resolved]
  - Disturbance in attention [Recovered/Resolved]
  - Cognitive disorder [Recovered/Resolved]
  - Memory impairment [Recovering/Resolving]
  - Visual impairment [Recovering/Resolving]
  - Diplopia [Recovering/Resolving]
  - Vasculitis [Not Recovered/Not Resolved]
  - Carotid artery occlusion [Recovered/Resolved]
  - Transient ischaemic attack [Recovered/Resolved]
  - Pruritus genital [Recovered/Resolved]
  - Sleep terror [Recovered/Resolved]
  - Fatigue [Recovered/Resolved]
  - Vomiting [Recovered/Resolved]
  - Ventricular tachycardia [Not Recovered/Not Resolved]
  - Pericarditis [Not Recovered/Not Resolved]
  - Cardiospasm [Not Recovered/Not Resolved]
  - Dyspnoea [Unknown]
  - Atrial tachycardia [Not Recovered/Not Resolved]
  - Anxiety [Not Recovered/Not Resolved]
  - Muscular weakness [Unknown]
  - Feeling abnormal [Unknown]
  - Insomnia [Unknown]
  - Heart rate increased [Unknown]
  - Muscle twitching [Unknown]
  - Abdominal pain upper [Unknown]
  - Dehydration [Unknown]
  - Hyperhidrosis [Unknown]
  - Rash papular [Recovering/Resolving]
  - Lip swelling [Recovering/Resolving]
  - Pruritus [Recovering/Resolving]
  - Palmoplantar keratoderma [Not Recovered/Not Resolved]
  - Dry skin [Not Recovered/Not Resolved]
  - Myocardial infarction [Recovered/Resolved]
  - Chest pain [Unknown]
  - Palpitations [Unknown]
  - Tachycardia [Unknown]
  - Subarachnoid haemorrhage [Recovered/Resolved]
  - Pain [Recovered/Resolved]
  - Anosmia [Recovered/Resolved]
  - Eye pruritus [Recovered/Resolved]
  - Facial pain [Recovered/Resolved]
  - Back pain [Recovered/Resolved]
  - Blood glucose increased [Unknown]
  - Amnesia [Not Recovered/Not Resolved]
  - Blindness [Not Recovered/Not Resolved]
  - Immunisation [Recovered/Resolved]
  - Alopecia [Recovered/Resolved]
  - Pyrexia [Unknown]
  - Tension headache [Not Recovered/Not Resolved]
  - Migraine [Not Recovered/Not Resolved]
  - Intentional product misuse [Unknown]
  - Off label use [Recovered/Resolved with Sequelae]
  - Drug abuse [Unknown]

NARRATIVE: CASE EVENT DATE: 20210101
